FAERS Safety Report 5882974-5 (Version None)
Quarter: 2008Q3

REPORT INFORMATION
  Report Type: 
  Country: None (occurrence: None)
  Receive Date: 20080913
  Receipt Date: 20080826
  Transmission Date: 20090109
  Serious: No
  Sender: FDA-Public Use
  Company Number: US-ABBOTT-08P-163-0472435-00

PATIENT
  Sex: Female
  Weight: 127.12 kg

DRUGS (25)
  1. HUMIRA [Suspect]
     Indication: RHEUMATOID ARTHRITIS
     Dates: start: 20070123
  2. NOVOLIN 70/30 [Concomitant]
     Indication: DIABETES MELLITUS
     Route: 050
  3. PIOGLITAZONE [Concomitant]
     Indication: DIABETES MELLITUS
     Route: 048
  4. IRBESARTAN [Concomitant]
     Indication: BLOOD PRESSURE
  5. METOPROLOL SUCCINATE [Concomitant]
     Indication: BLOOD PRESSURE
  6. SIMVASTATIN [Concomitant]
     Indication: BLOOD CHOLESTEROL
  7. CITALOPRAM HYDROBROMIDE [Concomitant]
     Indication: DEPRESSION
  8. GLICLAZIDE [Concomitant]
     Indication: URTICARIA
  9. CYCLOBENZAPRINE HCL [Concomitant]
     Indication: MUSCLE RELAXANT THERAPY
  10. OMEPRAZOLE SODIUM [Concomitant]
     Indication: DRUG USE FOR UNKNOWN INDICATION
  11. OS-CAL [Concomitant]
     Indication: DRUG USE FOR UNKNOWN INDICATION
  12. TOCOPHERYL ACETATE [Concomitant]
     Indication: DRUG USE FOR UNKNOWN INDICATION
  13. ACETYLSALICYLIC ACID SRT [Concomitant]
     Indication: DRUG USE FOR UNKNOWN INDICATION
  14. VIGRAN [Concomitant]
     Indication: DRUG USE FOR UNKNOWN INDICATION
  15. AMLODIPINE [Concomitant]
     Indication: BLOOD PRESSURE
  16. MELOXICAM [Concomitant]
     Indication: DRUG USE FOR UNKNOWN INDICATION
  17. DIPHENHYDRAMINE HYDROCHLORIDE [Concomitant]
     Indication: URTICARIA
  18. OXYCODONE HCL [Concomitant]
     Indication: BREAKTHROUGH PAIN
  19. OXYCODONE HCL [Concomitant]
     Indication: PAIN
  20. OXYCODONE HCL [Concomitant]
  21. DOCUSATE SODIUM [Concomitant]
     Indication: CONSTIPATION
  22. FUROSEMIDE [Concomitant]
     Indication: DIURETIC THERAPY
  23. KLOR-CON ER [Concomitant]
     Indication: MINERAL SUPPLEMENTATION
  24. ALPRAZOLAM [Concomitant]
     Indication: ANXIETY
  25. SENOKOT [Concomitant]
     Indication: DRUG USE FOR UNKNOWN INDICATION
     Dosage: 50MG/8.6MG

REACTIONS (1)
  - INJECTION SITE PAIN [None]
